FAERS Safety Report 20177918 (Version 1)
Quarter: 2021Q4

REPORT INFORMATION
  Report Type: Spontaneous
  Country: US (occurrence: US)
  Receive Date: 20211213
  Receipt Date: 20211213
  Transmission Date: 20220303
  Serious: Yes (Hospitalization, Other)
  Sender: FDA-Public Use
  Company Number: None

PATIENT
  Age: 35 Year
  Sex: Male

DRUGS (1)
  1. CALCIUM CARBONATE [Suspect]
     Active Substance: CALCIUM CARBONATE
     Indication: Abdominal pain
     Dosage: UNK
     Route: 048

REACTIONS (17)
  - Milk-alkali syndrome [Unknown]
  - Pancreatitis acute [Unknown]
  - Acute kidney injury [Unknown]
  - Mental status changes [Unknown]
  - Confusional state [Unknown]
  - Blood bicarbonate increased [Recovered/Resolved]
  - Blood calcium increased [Recovering/Resolving]
  - Blood chloride decreased [Recovered/Resolved]
  - Blood creatinine increased [Recovering/Resolving]
  - Blood phosphorus increased [Recovering/Resolving]
  - Blood potassium decreased [Recovered/Resolved]
  - Blood sodium decreased [Recovered/Resolved]
  - Blood urea increased [Recovering/Resolving]
  - Pancreatic enlargement [Unknown]
  - Oedematous pancreatitis [Unknown]
  - Pancreatic pseudocyst [Unknown]
  - Imaging procedure abnormal [Unknown]
